FAERS Safety Report 4396822-6 (Version None)
Quarter: 2004Q3

REPORT INFORMATION
  Report Type: 
  Country: None (occurrence: None)
  Receive Date: 20040713
  Receipt Date: 20040713
  Transmission Date: 20050211
  Serious: Yes (Hospitalization, Other)
  Sender: FDA-Public Use
  Company Number: None

PATIENT
  Age: 57 Year
  Sex: Male
  Weight: 87.9 kg

DRUGS (10)
  1. HEPARIN [Suspect]
     Indication: ANTICOAGULANT THERAPY
     Dosage: 800 UNITS /HR IV
     Route: 042
     Dates: start: 20040320
  2. ASPIRIN [Suspect]
     Indication: ANTIPLATELET THERAPY
     Dosage: 325 MG PO DAILY
     Route: 048
     Dates: start: 20040320
  3. ASPIRIN [Concomitant]
  4. NITROGLYCERIN [Concomitant]
  5. HEPARIN [Concomitant]
  6. MORPHINE [Concomitant]
  7. REOPRO [Concomitant]
  8. CONTRAST IV [Concomitant]
  9. ZOLPIDEM TARTRATE [Concomitant]
  10. TYLENOL [Concomitant]

REACTIONS (3)
  - HAEMATURIA [None]
  - HAEMOPTYSIS [None]
  - THROMBOSIS [None]
